FAERS Safety Report 9760444 (Version 1)
Quarter: 2013Q4

REPORT INFORMATION
  Report Type: Spontaneous
  Country: US (occurrence: US)
  Receive Date: 20131216
  Receipt Date: 20131216
  Transmission Date: 20140711
  Serious: No
  Sender: FDA-Public Use
  Company Number: US-BAYER-2013-152178

PATIENT
  Age: 55 Year
  Sex: Male

DRUGS (6)
  1. STAXYN (FDT/ODT) [Suspect]
     Indication: UNEVALUABLE EVENT
     Dosage: 10 MG, UNK
     Route: 048
     Dates: start: 20131124, end: 20131125
  2. TRAVATAN [Concomitant]
     Dosage: UNK
  3. LISINOPRIL [Concomitant]
     Dosage: 20 MG, UNK
  4. JANUVIA [Concomitant]
     Dosage: UNK
  5. METFORMIN [Concomitant]
  6. TESTOSTERONE [Concomitant]
     Dosage: TWICE A MONTH

REACTIONS (2)
  - Headache [Unknown]
  - Intraocular pressure increased [Unknown]
